FAERS Safety Report 5176397-4 (Version None)
Quarter: 2006Q4

REPORT INFORMATION
  Report Type: 
  Country: None (occurrence: None)
  Receive Date: 20061215
  Receipt Date: 20061205
  Transmission Date: 20070319
  Serious: No
  Sender: FDA-Public Use
  Company Number: JP-MERCK-0612USA02145M

PATIENT
  Sex: Female

DRUGS (1)
  1. DECADRON [Suspect]
     Indication: PROPHYLAXIS
     Route: 048

REACTIONS (2)
  - DRUG EXPOSURE DURING PREGNANCY [None]
  - INTRAUTERINE INFECTION [None]
